FAERS Safety Report 20016826 (Version 1)
Quarter: 2021Q4

REPORT INFORMATION
  Report Type: Spontaneous
  Country: US (occurrence: None)
  Receive Date: 20211105
  Receipt Date: 20211105
  Transmission Date: 20220303
  Serious: Yes (Hospitalization)
  Sender: FDA-Public Use
  Company Number: None

PATIENT
  Age: 40 Year
  Sex: Female
  Weight: 56.25 kg

DRUGS (2)
  1. ADAKVEO [Suspect]
     Active Substance: CRIZANLIZUMAB-TMCA
     Indication: Sickle cell anaemia
     Route: 042
  2. CRIZANLIZUMAB [Concomitant]
     Active Substance: CRIZANLIZUMAB
     Dates: start: 20211029, end: 20211029

REACTIONS (5)
  - Hypersensitivity [None]
  - Chest discomfort [None]
  - Back pain [None]
  - Infusion related reaction [None]
  - Respiratory disorder [None]

NARRATIVE: CASE EVENT DATE: 20211029
